FAERS Safety Report 5470473-4 (Version None)
Quarter: 2007Q3

REPORT INFORMATION
  Report Type: 
  Country: None (occurrence: None)
  Receive Date: 20070927
  Receipt Date: 20070927
  Transmission Date: 20080115
  Serious: No
  Sender: FDA-Public Use
  Company Number: None

PATIENT
  Sex: Female

DRUGS (4)
  1. ESTRADIOL [Suspect]
     Indication: DEPRESSION
     Dosage: 0.1 MG/DAY APPLY TO SKIN CHANGE WEEKLY TOPICAL
     Route: 062
     Dates: start: 20060801
  2. ESTRADIOL [Suspect]
     Indication: MENOPAUSAL SYMPTOMS
     Dosage: 0.1 MG/DAY APPLY TO SKIN CHANGE WEEKLY TOPICAL
     Route: 062
     Dates: start: 20060801
  3. ESTRADIOL [Suspect]
     Indication: SLEEP DISORDER
     Dosage: 0.1 MG/DAY APPLY TO SKIN CHANGE WEEKLY TOPICAL
     Route: 062
     Dates: start: 20060801
  4. CLIMARA [Suspect]

REACTIONS (2)
  - MENTAL DISORDER [None]
  - PHARMACEUTICAL PRODUCT COMPLAINT [None]
